FAERS Safety Report 7878447-0 (Version None)
Quarter: 2011Q4

REPORT INFORMATION
  Report Type: 
  Country: None (occurrence: None)
  Receive Date: 20111028
  Receipt Date: 20111013
  Transmission Date: 20120403
  Serious: Yes (Hospitalization, Other)
  Sender: FDA-Public Use
  Company Number: 2011MA002940

PATIENT
  Age: 72 Year
  Sex: Male
  Weight: 77.1115 kg

DRUGS (54)
  1. BACITRACIN/POLYMYXIN OINTMENT [Concomitant]
  2. DOCUSATE [Concomitant]
  3. AVAPRO [Concomitant]
  4. BRIMONIDINE EYE DROPS [Concomitant]
  5. CEFTIN [Concomitant]
  6. CLOPIDOGREL [Concomitant]
  7. COSOPT EYE DROPS [Concomitant]
  8. OXYCODONE HCL [Concomitant]
  9. PRILOSEC [Concomitant]
  10. RABEPRAZOLE SODIUM [Concomitant]
  11. AMLODIPINE [Concomitant]
  12. VITAMIN B-12 [Concomitant]
  13. CITALOPRAM HYDROBROMIDE [Concomitant]
  14. COZAAR [Concomitant]
  15. MUCOMYST [Concomitant]
  16. NORVASC [Concomitant]
  17. RANOLAZINE [Concomitant]
  18. ASCORBIC ACID [Concomitant]
  19. ALBUTEROL [Concomitant]
  20. ARTIFICIAL SALIVA [Concomitant]
  21. FUROSEMIDE [Concomitant]
  22. ISOSORBIDE MONONITRATE [Concomitant]
  23. LANSOPRAZOLE [Concomitant]
  24. VICODIN [Concomitant]
  25. ASCORBIC ACID [Concomitant]
  26. ATENOLOL [Concomitant]
  27. DORZOLAMIDE/TIMOLOL EYE DROPS [Concomitant]
  28. GLIMEPIRIDE [Concomitant]
  29. KAPIDEX [Concomitant]
  30. LOSARTAN POTASSIUM [Concomitant]
  31. M.V.I. [Concomitant]
  32. NITROGLYCERIN [Concomitant]
  33. PLAVIX [Concomitant]
  34. SIMVASTATIN [Concomitant]
  35. VITAMIN D [Concomitant]
  36. ZOCOR [Concomitant]
  37. ASPIRIN [Concomitant]
  38. B1 [Concomitant]
  39. CALCIUM +D [Concomitant]
  40. IRBESARTAN [Concomitant]
  41. LASIX [Concomitant]
  42. NITRO-DUR [Concomitant]
  43. RANEXA [Concomitant]
  44. SODIUM FLUORIDE DENTAL GEL [Concomitant]
  45. THIAMIINE [Concomitant]
  46. CYANOCOBALAMIN [Concomitant]
  47. IMDUR [Concomitant]
  48. TERBINAFINE HCL [Concomitant]
  49. METOCLOPRAMIDE [Suspect]
     Indication: GASTROOESOPHAGEAL REFLUX DISEASE
     Dosage: 10 MG;BID;PO
     Route: 048
     Dates: start: 19850101, end: 20100701
  50. METOCLOPRAMIDE [Suspect]
     Indication: IMPAIRED GASTRIC EMPTYING
     Dosage: 10 MG;BID;PO
     Route: 048
     Dates: start: 19850101, end: 20100701
  51. ALIGN [Concomitant]
  52. ACETAMINOPHEN AND HYDROCODONE BITARTRATE [Concomitant]
  53. GABAPENTIN [Concomitant]
  54. NIACIN [Concomitant]

REACTIONS (51)
  - MUSCLE TWITCHING [None]
  - ABDOMINAL DISTENSION [None]
  - FALL [None]
  - GASTRITIS [None]
  - VERTIGO [None]
  - TOOTH ABSCESS [None]
  - LUNG NEOPLASM [None]
  - PAIN [None]
  - HEAD INJURY [None]
  - NEPHROGENIC ANAEMIA [None]
  - ABDOMINAL ADHESIONS [None]
  - LIP NEOPLASM MALIGNANT STAGE UNSPECIFIED [None]
  - EXTRAPYRAMIDAL DISORDER [None]
  - OESOPHAGEAL PAIN [None]
  - PERIODONTITIS [None]
  - RENAL FAILURE CHRONIC [None]
  - ECONOMIC PROBLEM [None]
  - DYSTONIA [None]
  - TREMOR [None]
  - BARRETT'S OESOPHAGUS [None]
  - HAEMORRHAGIC CYST [None]
  - CHRONIC SINUSITIS [None]
  - CEREBRAL ISCHAEMIA [None]
  - CHOKING [None]
  - HEADACHE [None]
  - RENAL CYST [None]
  - CHEST DISCOMFORT [None]
  - INTERVERTEBRAL DISC PROTRUSION [None]
  - TARDIVE DYSKINESIA [None]
  - RENAL DISORDER [None]
  - CEREBRAL ATROPHY [None]
  - EXOSTOSIS [None]
  - EMOTIONAL DISORDER [None]
  - PAIN IN EXTREMITY [None]
  - BACK PAIN [None]
  - OSTEOARTHRITIS [None]
  - HIATUS HERNIA [None]
  - OEDEMA [None]
  - GAIT DISTURBANCE [None]
  - DEAFNESS [None]
  - CHOLELITHIASIS [None]
  - VERTEBRAL FORAMINAL STENOSIS [None]
  - INJURY [None]
  - ANXIETY [None]
  - ERUCTATION [None]
  - HYPERLIPIDAEMIA [None]
  - HAEMORRHOIDS [None]
  - COLONIC POLYP [None]
  - DIABETIC FOOT [None]
  - AORTIC ANEURYSM [None]
  - NASAL SEPTUM DEVIATION [None]
